FAERS Safety Report 8364903-8 (Version None)
Quarter: 2012Q2

REPORT INFORMATION
  Report Type: 
  Country: None (occurrence: None)
  Receive Date: 20120516
  Receipt Date: 20120504
  Transmission Date: 20120825
  Serious: Yes (Other)
  Sender: FDA-Public Use
  Company Number: US-ROCHE-768658

PATIENT
  Sex: Female
  Weight: 70.9 kg

DRUGS (10)
  1. ACTEMRA [Suspect]
     Indication: RHEUMATOID ARTHRITIS
     Dosage: TEMPORARILY INTERUPTED:30 MAR 2011,LAST DOSE PRIOR TO SAE: 02 MAR 2011. DOSE: INFUSION.FREQ4 WEEKLY.
     Route: 042
     Dates: start: 20100303, end: 20110330
  2. DICLOFENAC SODIUM [Suspect]
     Indication: PRODUCT USED FOR UNKNOWN INDICATION
     Route: 065
  3. LISINOPRIL [Concomitant]
  4. ACETAMINOPHEN [Concomitant]
     Dosage: PRN
  5. PREDNISONE [Concomitant]
  6. METHOTREXATE [Suspect]
     Indication: RHEUMATOID ARTHRITIS
     Dosage: LAST DOSE PRIOR TO SAE: 16 MAR 2011.
     Route: 048
  7. ACTEMRA [Suspect]
     Dosage: LASTE DOSE PRIOR SAE : 02 MAR 2011, PERMANENTLY DISCONTINUED ON 07 JUN 2011
     Route: 042
     Dates: start: 20100303, end: 20110302
  8. METHOTREXATE [Suspect]
     Dosage: LASTE DOSE PRIOR SAE : 16 MAR 2011, PERMANENTLY DISCONTINUED ON 07 JUN 2011
     Route: 048
     Dates: start: 20100303, end: 20110316
  9. FOLIC ACID [Suspect]
     Indication: RHEUMATOID ARTHRITIS
     Dosage: FREQUENCY DAILY.
     Route: 048
  10. FERROUS SULFATE TAB [Concomitant]

REACTIONS (1)
  - COLITIS [None]
